FAERS Safety Report 9301470 (Version 1)
Quarter: 2013Q2

REPORT INFORMATION
  Report Type: Spontaneous
  Country: FI (occurrence: FI)
  Receive Date: 20130520
  Receipt Date: 20130520
  Transmission Date: 20140414
  Serious: Yes (Other)
  Sender: FDA-Public Use
  Company Number: FI-RB-017315-09

PATIENT
  Age: 33 Year
  Sex: Female

DRUGS (3)
  1. SUBUTEX [Suspect]
     Indication: DRUG DEPENDENCE
     Dosage: DOSING INFORMATION UNKNOWN.
     Route: 065
  2. SUBUTEX [Suspect]
     Dosage: REDUCED TO UNKNOWN AMOUNT.
     Route: 065
  3. BENZODIAZEPINES [Concomitant]
     Indication: PRODUCT USED FOR UNKNOWN INDICATION
     Dosage: DOSING INFORMATION UNKNOWN,
     Route: 065
     Dates: end: 2008

REACTIONS (8)
  - Exposure during pregnancy [Recovered/Resolved]
  - Gestational diabetes [Unknown]
  - Cellulitis [Unknown]
  - Premature rupture of membranes [Recovered/Resolved]
  - Substance abuse [Unknown]
  - Premature delivery [Recovered/Resolved]
  - Fatigue [Unknown]
  - Bronchitis [Unknown]
